FAERS Safety Report 7277184-3 (Version None)
Quarter: 2011Q1

REPORT INFORMATION
  Report Type: 
  Country: None (occurrence: None)
  Receive Date: 20110202
  Receipt Date: 20110202
  Transmission Date: 20110831
  Serious: Yes (Hospitalization, Disabling, Other)
  Sender: FDA-Public Use
  Company Number: None

PATIENT
  Age: 92 Year
  Sex: Female
  Weight: 59 kg

DRUGS (1)
  1. PRADAXA [Suspect]
     Indication: ATRIAL FIBRILLATION
     Dosage: 1 TABLET TWICE DAILY PO
     Route: 048

REACTIONS (16)
  - DIARRHOEA [None]
  - PERICARDIAL HAEMORRHAGE [None]
  - LIVER DISORDER [None]
  - DYSPNOEA [None]
  - DECREASED APPETITE [None]
  - CONDITION AGGRAVATED [None]
  - PROCEDURAL COMPLICATION [None]
  - COUGH [None]
  - LIVER FUNCTION TEST ABNORMAL [None]
  - DIZZINESS [None]
  - PRESYNCOPE [None]
  - RENAL FAILURE ACUTE [None]
  - PERICARDIAL DISEASE [None]
  - ABDOMINAL PAIN [None]
  - VOMITING [None]
  - CARDIAC FAILURE [None]
